FAERS Safety Report 8017340-X (Version None)
Quarter: 2012Q1

REPORT INFORMATION
  Report Type: 
  Country: None (occurrence: None)
  Receive Date: 20120102
  Receipt Date: 20111221
  Transmission Date: 20120608
  Serious: Yes (Hospitalization)
  Sender: FDA-Public Use
  Company Number: JP-ROCHE-1025313

PATIENT
  Age: 68 Year
  Sex: Female

DRUGS (3)
  1. MIRCERA [Suspect]
     Indication: NEPHROGENIC ANAEMIA
     Dosage: DOSAGE IS UNCERTAIN.
     Route: 042
     Dates: start: 20111025, end: 20111025
  2. LIPITOR [Concomitant]
     Dosage: DOSAGE IS UNCERTAIN.
     Route: 048
  3. ACECOL [Concomitant]
     Dosage: DOSAGE IS UNCERTAIN.
     Route: 048

REACTIONS (2)
  - DERMATITIS EXFOLIATIVE [None]
  - PRURITUS GENERALISED [None]
